FAERS Safety Report 22143100 (Version 1)
Quarter: 2023Q1

REPORT INFORMATION
  Report Type: Report from Study
  Country: BR (occurrence: US)
  Receive Date: 20230327
  Receipt Date: 20230327
  Transmission Date: 20230418
  Serious: Yes (Other)
  Sender: FDA-Public Use
  Company Number: BR-ELI_LILLY_AND_COMPANY-US202303008692

PATIENT

DRUGS (4)
  1. GEMCITABINE HYDROCHLORIDE [Suspect]
     Active Substance: GEMCITABINE HYDROCHLORIDE
     Indication: Pancreatic carcinoma metastatic
     Dosage: 1000 MG/M2, GIVE ON DAYS 1, 8, AND 15
     Route: 065
  2. PACLITAXEL [Concomitant]
     Active Substance: PACLITAXEL
     Indication: Pancreatic carcinoma metastatic
     Dosage: 125 MG/M2, GIVE ON DAYS 1, 8, AND 15
     Route: 065
  3. CIFURTILIMAB [Concomitant]
     Active Substance: CIFURTILIMAB
     Indication: Pancreatic carcinoma metastatic
     Dosage: 10 UG/KG, WAS GIVEN ON DAY 3 OF EACH 28-DAY CYCLE
     Route: 065
  4. PEMBROLIZUMAB [Concomitant]
     Active Substance: PEMBROLIZUMAB
     Indication: Pancreatic carcinoma metastatic
     Dosage: 400 MG, WAS GIVEN EVERY 6 WEEKS STARTING ON DAY 8 FOR UP TO 2 YEARS
     Route: 065

REACTIONS (1)
  - Septic shock [Unknown]
